FAERS Safety Report 8847847 (Version 1)
Quarter: 2012Q4

REPORT INFORMATION
  Report Type: 
  Country: US (occurrence: US)
  Receive Date: 20121018
  Receipt Date: 20121018
  Transmission Date: 20130627
  Serious: Yes (Hospitalization)
  Sender: FDA-Public Use
  Company Number: US-ABBOTT-12P-163-0994106-00

PATIENT
  Age: 79 Year
  Sex: Female
  Weight: 58.11 kg

DRUGS (7)
  1. VICODIN [Suspect]
     Indication: PAIN
  2. TOVIAZ [Suspect]
     Indication: HYPERTONIC BLADDER
     Dosage: 4mg daily at night
     Route: 048
  3. NEURONTIN [Concomitant]
     Indication: NEUROPATHY PERIPHERAL
  4. AMITRIPYLINE [Concomitant]
     Indication: NEUROPATHY PERIPHERAL
     Dosage: 50mg daily
  5. RECLAST [Concomitant]
     Indication: OSTEOPOROSIS
     Dosage: Every year
  6. UNSPECIFIED MEDICATION [Concomitant]
     Indication: CARDIAC DISORDER
  7. UNSPECIFIED MEDICATION [Concomitant]
     Indication: BLOOD PRESSURE ABNORMAL

REACTIONS (3)
  - Upper limb fracture [Unknown]
  - Dry mouth [Unknown]
  - Fall [Unknown]
